FAERS Safety Report 6441744-X (Version None)
Quarter: 2009Q4

REPORT INFORMATION
  Report Type: 
  Country: None (occurrence: None)
  Receive Date: 20091116
  Receipt Date: 20091105
  Transmission Date: 20100525
  Serious: Yes (Hospitalization)
  Sender: FDA-Public Use
  Company Number: US-PFIZER INC-2009294359

PATIENT
  Sex: Male

DRUGS (7)
  1. ALDACTONE [Suspect]
     Indication: CARDIAC FAILURE CONGESTIVE
     Dosage: 25 MG, UNK
     Route: 048
     Dates: start: 20090509, end: 20090916
  2. BLINDED THERAPY [Suspect]
     Dosage: UNK
     Route: 048
     Dates: start: 20070411, end: 20080515
  3. BLINDED THERAPY [Suspect]
     Dosage: UNK
     Route: 048
     Dates: start: 20080524, end: 20090914
  4. LASIX [Suspect]
     Indication: CARDIAC FAILURE CONGESTIVE
     Dosage: 80 MG, 1X/DAY
     Route: 048
     Dates: start: 20090325, end: 20090914
  5. LASIX [Suspect]
     Dosage: 80 MG, 1X/DAY
     Route: 042
     Dates: start: 20090915, end: 20090917
  6. LASIX [Suspect]
     Dosage: 80 MG, 1X/DAY
     Route: 048
     Dates: start: 20090918, end: 20090922
  7. ZAROXOLYN [Concomitant]
     Indication: CARDIAC FAILURE CONGESTIVE
     Dosage: 2.5 MG, UNK
     Route: 048
     Dates: start: 20090613, end: 20090909

REACTIONS (1)
  - CARDIAC FAILURE CONGESTIVE [None]
